FAERS Safety Report 7683175-0 (Version None)
Quarter: 2011Q3

REPORT INFORMATION
  Report Type: 
  Country: None (occurrence: None)
  Receive Date: 20110815
  Receipt Date: 20110808
  Transmission Date: 20111222
  Serious: Yes (Death)
  Sender: FDA-Public Use
  Company Number: CZ-GENZYME-FABR-1001942

PATIENT
  Sex: Male
  Weight: 68 kg

DRUGS (2)
  1. FABRAZYME [Suspect]
     Dosage: 1 MG/KG, Q2HR
     Route: 042
  2. FABRAZYME [Suspect]
     Indication: FABRY'S DISEASE
     Dosage: 0.5 MG, UNK
     Route: 042
     Dates: start: 20110315

REACTIONS (1)
  - CARDIAC FAILURE [None]
